FAERS Safety Report 18035335 (Version 1)
Quarter: 2020Q3

REPORT INFORMATION
  Report Type: Spontaneous
  Country: US (occurrence: US)
  Receive Date: 20200716
  Receipt Date: 20200716
  Transmission Date: 20201103
  Serious: Yes (Hospitalization)
  Sender: FDA-Public Use
  Company Number: None

PATIENT
  Sex: Male

DRUGS (2)
  1. SOMATULINE DEPOT [Suspect]
     Active Substance: LANREOTIDE ACETATE
     Indication: CARCINOID SYNDROME
     Dosage: ?          OTHER STRENGTH:120MG/.5M;?
     Route: 058
     Dates: start: 202006
  2. CAPECITABINE 500MG NOVADOZ PHARMACEUTICALS [Suspect]
     Active Substance: CAPECITABINE
     Indication: CARCINOID SYNDROME
     Route: 048
     Dates: start: 202005

REACTIONS (1)
  - Intestinal obstruction [None]
